FAERS Safety Report 19352401 (Version 2)
Quarter: 2021Q2

REPORT INFORMATION
  Report Type: Spontaneous
  Country: GB (occurrence: GB)
  Receive Date: 20210531
  Receipt Date: 20210608
  Transmission Date: 20210717
  Serious: Yes (Other)
  Sender: FDA-Public Use
  Company Number: GB-TORRENT-00025771

PATIENT
  Age: 38 Year
  Sex: Female

DRUGS (3)
  1. NIFEDIPRESS MR [Suspect]
     Active Substance: NIFEDIPINE
     Indication: ILL-DEFINED DISORDER
     Dosage: UNKNOWN
     Route: 048
     Dates: start: 20191017, end: 20200510
  2. LOSARTAN. [Suspect]
     Active Substance: LOSARTAN
     Indication: ILL-DEFINED DISORDER
     Dosage: UNKNOWN
     Route: 048
     Dates: start: 20200510, end: 20201210
  3. MISOPROSTOL. [Suspect]
     Active Substance: MISOPROSTOL
     Indication: ILL-DEFINED DISORDER
     Dosage: 2 TABLETS UNDER TONGUE
     Route: 048
     Dates: start: 20200106, end: 20200106

REACTIONS (16)
  - Myalgia [Recovered/Resolved with Sequelae]
  - Abdominal tenderness [Unknown]
  - Condition aggravated [Recovered/Resolved with Sequelae]
  - Alopecia [Recovering/Resolving]
  - Oral pain [Unknown]
  - Glossodynia [Unknown]
  - Cervix enlargement [Unknown]
  - Tremor [Recovered/Resolved with Sequelae]
  - Tendon pain [Not Recovered/Not Resolved]
  - Arthritis [Recovered/Resolved with Sequelae]
  - Cervix disorder [Unknown]
  - Medication error [Unknown]
  - Abortion spontaneous [Unknown]
  - Joint instability [Recovered/Resolved with Sequelae]
  - Pain of skin [Recovered/Resolved with Sequelae]
  - Vomiting projectile [Recovered/Resolved with Sequelae]

NARRATIVE: CASE EVENT DATE: 20191030
